FAERS Safety Report 8594159-2 (Version None)
Quarter: 2012Q3

REPORT INFORMATION
  Report Type: 
  Country: None (occurrence: None)
  Receive Date: 20120814
  Receipt Date: 20120802
  Transmission Date: 20120928
  Serious: Yes (Hospitalization)
  Sender: FDA-Public Use
  Company Number: US-009507513-1204USA03834

PATIENT

DRUGS (8)
  1. VORINOSTAT [Suspect]
     Indication: MULTIPLE MYELOMA
     Dosage: DAYS 1-7
     Route: 048
  2. LENALIDOMIDE [Suspect]
     Indication: MULTIPLE MYELOMA
     Dosage: DAY 1-21
     Route: 048
  3. DEXAMETHASONE [Suspect]
     Dosage: DAY 22
     Route: 048
  4. DEXAMETHASONE [Suspect]
     Indication: MULTIPLE MYELOMA
     Dosage: DAY 1
     Route: 048
  5. DEXAMETHASONE [Suspect]
     Dosage: DAY 8
     Route: 048
  6. VORINOSTAT [Suspect]
     Dosage: DAYS 15-21
     Route: 048
  7. DEXAMETHASONE [Suspect]
     Dosage: DAY 15
     Route: 048
  8. ASPIRIN [Concomitant]
     Dosage: 81 MG, UNK

REACTIONS (7)
  - SYNCOPE [None]
  - NAUSEA [None]
  - DIARRHOEA [None]
  - HAEMATEMESIS [None]
  - VOMITING [None]
  - ASTHENIA [None]
  - EPISTAXIS [None]
